FAERS Safety Report 25881354 (Version 1)
Quarter: 2025Q4

REPORT INFORMATION
  Report Type: Spontaneous
  Country: US (occurrence: US)
  Receive Date: 20251005
  Receipt Date: 20251005
  Transmission Date: 20260117
  Serious: No
  Sender: SANOFI AVENTIS
  Company Number: US-SA-2025SA293652

PATIENT
  Age: 18 Year
  Sex: Male

DRUGS (3)
  1. ELOCTATE [Suspect]
     Active Substance: EFMOROCTOCOG ALFA
     Indication: Factor VIII deficiency
     Dosage: 5500 U, PRN (BIW AS NEEDED)
     Route: 042
     Dates: start: 201804
  2. ELOCTATE [Suspect]
     Active Substance: EFMOROCTOCOG ALFA
     Indication: Factor VIII deficiency
     Dosage: 5500 U, PRN (BIW AS NEEDED)
     Route: 042
     Dates: start: 201804
  3. HEMLIBRA [Concomitant]
     Active Substance: EMICIZUMAB-KXWH
     Indication: Prophylaxis
     Dosage: UNK

REACTIONS (2)
  - Injury [Unknown]
  - Contusion [Unknown]

NARRATIVE: CASE EVENT DATE: 20250901
